FAERS Safety Report 5830646-5 (Version None)
Quarter: 2008Q3

REPORT INFORMATION
  Report Type: 
  Country: None (occurrence: None)
  Receive Date: 20080801
  Receipt Date: 20070907
  Transmission Date: 20090109
  Serious: No
  Sender: FDA-Public Use
  Company Number: US-BRISTOL-MYERS SQUIBB COMPANY-13901657

PATIENT
  Age: 91 Year
  Sex: Female
  Weight: 58 kg

DRUGS (10)
  1. COUMADIN [Suspect]
     Indication: ATRIAL FIBRILLATION
     Dosage: 2 MG ONCE DAILY FOR THE LAST 6 MONTHS ; LOT#:EUJ420A , EXPIRATION DATE:10/2009
  2. TOPROL-XL [Concomitant]
  3. VERAPMIL [Concomitant]
  4. LEVOTHYROXINE SODIUM [Concomitant]
  5. FUROSEMIDE [Concomitant]
  6. MULTI-VITAMIN [Concomitant]
  7. CALCIUM [Concomitant]
  8. BONIVA [Concomitant]
  9. ALBUTEROL [Concomitant]
  10. ATROVENT [Concomitant]

REACTIONS (2)
  - EAR PRURITUS [None]
  - OEDEMA PERIPHERAL [None]
